FAERS Safety Report 4334084-6 (Version None)
Quarter: 2004Q2

REPORT INFORMATION
  Report Type: 
  Country: None (occurrence: None)
  Receive Date: 20040402
  Receipt Date: 20031117
  Transmission Date: 20050107
  Serious: Yes (Other)
  Sender: FDA-Public Use
  Company Number: 200403583

PATIENT
  Age: 4 Year
  Sex: Female

DRUGS (1)
  1. IMODIUM A-D [Suspect]
     Dosage: SUBLINGUAL
     Route: 060

REACTIONS (1)
  - ANGIONEUROTIC OEDEMA [None]
